FAERS Safety Report 8685346 (Version 4)
Quarter: 2012Q4

REPORT INFORMATION
  Report Type: Report from Study
  Country: US (occurrence: US)
  Receive Date: 20120726
  Receipt Date: 20121207
  Transmission Date: 20130627
  Serious: Yes (Hospitalization)
  Sender: FDA-Public Use
  Company Number: US-JNJFOC-20120710378

PATIENT
  Age: 66 Year
  Sex: Male
  Weight: 94.5 kg

DRUGS (3)
  1. IBUPROFEN [Suspect]
     Indication: RHEUMATOID ARTHRITIS
     Dosage: 800mg, thrice a day
     Route: 048
     Dates: start: 20100304
  2. IBUPROFEN [Suspect]
     Indication: OSTEOARTHRITIS
     Dosage: 800mg, thrice a day
     Route: 048
     Dates: start: 20100304
  3. NEXIUM [Concomitant]
     Indication: PROPHYLAXIS
     Route: 048
     Dates: start: 20100304

REACTIONS (3)
  - Gastroenteritis [Recovered/Resolved]
  - Dehydration [Recovered/Resolved]
  - Pneumonia aspiration [Recovered/Resolved]
